FAERS Safety Report 13191267 (Version 3)
Quarter: 2017Q1

REPORT INFORMATION
  Report Type: Spontaneous
  Country: BE (occurrence: BE)
  Receive Date: 20170207
  Receipt Date: 20170331
  Transmission Date: 20170428
  Serious: Yes (Hospitalization, Other)
  Sender: FDA-Public Use
  Company Number: BE-AMGEN-BELSP2017017396

PATIENT
  Age: 60 Year
  Sex: Female

DRUGS (38)
  1. DAFALGAN [Concomitant]
     Active Substance: ACETAMINOPHEN
     Indication: PAIN
     Dosage: 1 DF, UNK
  2. AVELOX [Concomitant]
     Active Substance: MOXIFLOXACIN HYDROCHLORIDE
     Dosage: 400 MG, UNK
     Dates: start: 20121226, end: 20121230
  3. IMODIUM [Concomitant]
     Active Substance: LOPERAMIDE HYDROCHLORIDE
     Indication: DIARRHOEA
     Dosage: 1 DF (TABLET), AS NECESSARY
     Dates: start: 20130208, end: 20130208
  4. SPIRIVA [Concomitant]
     Active Substance: TIOTROPIUM BROMIDE MONOHYDRATE
     Dosage: 18 MUG, UNK
     Dates: start: 20140417
  5. DEXAMETHASONE. [Concomitant]
     Active Substance: DEXAMETHASONE
     Indication: CHEMOTHERAPY
     Dosage: UNK
     Dates: start: 20121001
  6. DAFALGAN [Concomitant]
     Active Substance: ACETAMINOPHEN
     Indication: DISCOMFORT
  7. FERROGRADUMET [Concomitant]
     Dosage: 1 DF (TABLET), UNK
     Dates: start: 20140401, end: 20141027
  8. ONBREZ [Concomitant]
     Active Substance: INDACATEROL
     Dosage: UNK UNK, AS NECESSARY
     Dates: start: 201410
  9. ZYRTEC [Concomitant]
     Active Substance: CETIRIZINE HYDROCHLORIDE
     Dosage: UNK
     Dates: start: 20121001
  10. LYRICA [Concomitant]
     Active Substance: PREGABALIN
     Indication: NEURALGIA
     Dosage: 2 DF, QD
  11. XGEVA [Suspect]
     Active Substance: DENOSUMAB
     Indication: METASTASES TO BONE
     Dosage: 120 MG, Q4WK
     Route: 065
     Dates: start: 20120816
  12. PERTUZUMAB [Concomitant]
     Active Substance: PERTUZUMAB
     Indication: HER-2 POSITIVE BREAST CANCER
     Dosage: 420 MG, Q3WK (DAY 1 OF CYCLE 1)
     Route: 042
     Dates: start: 20121002
  13. D-CURE [Concomitant]
     Indication: PROPHYLAXIS
     Dosage: 1 UNIT, QMO
  14. DEANXIT [Concomitant]
     Active Substance: FLUPENTIXOL DIHYDROCHLORIDE\MELITRACEN HYDROCHLORIDE
     Indication: NEURALGIA
     Dosage: UNK
  15. AMOXICILLINE [Concomitant]
     Active Substance: AMOXICILLIN
     Dosage: UNK
     Dates: start: 20121209, end: 20121213
  16. BETADINE [Concomitant]
     Active Substance: POVIDONE-IODINE
     Dosage: 1 UNIT, UNK
     Dates: start: 20131126
  17. DALACIN C [Concomitant]
     Active Substance: CLINDAMYCIN PHOSPHATE
     Dosage: 1800 MG, TID
     Dates: start: 20160129
  18. TRASTUZUMAB [Concomitant]
     Active Substance: TRASTUZUMAB
     Indication: HER-2 POSITIVE BREAST CANCER
     Dosage: 378 MG, Q3WK
     Route: 042
     Dates: start: 20121002
  19. ZOLPIDEM [Concomitant]
     Active Substance: ZOLPIDEM\ZOLPIDEM TARTRATE
     Indication: SLEEP DISORDER
     Dosage: UNK
  20. INNOHEP [Concomitant]
     Active Substance: TINZAPARIN SODIUM
     Dosage: 14000 UNIT, UNK
     Dates: start: 20121127
  21. STILNOCT [Concomitant]
     Active Substance: ZOLPIDEM TARTRATE
     Indication: SLEEP DISORDER
     Dosage: 1 DF, UNK
     Dates: start: 20130207, end: 20130221
  22. DUOVENT [Concomitant]
     Active Substance: FENOTEROL HYDROBROMIDE
     Dosage: 1 PUFF UNK, QD
     Dates: start: 20140106
  23. FLAGYL [Concomitant]
     Active Substance: METRONIDAZOLE\METRONIDAZOLE HYDROCHLORIDE
  24. ZITROMAX [Concomitant]
     Active Substance: AZITHROMYCIN
     Dosage: 500 MG (1 TABLET), UNK
     Dates: start: 20121230, end: 20130104
  25. VANCOCIN [Concomitant]
     Active Substance: VANCOMYCIN HYDROCHLORIDE
     Dosage: UNK
     Dates: start: 20130207, end: 20130221
  26. TAVANIC [Concomitant]
     Active Substance: LEVOFLOXACIN
     Dosage: 500 MG, UNK
     Dates: start: 20130702
  27. LEVOCETIRIZINE [Concomitant]
     Active Substance: LEVOCETIRIZINE
     Indication: PRURITUS
     Dosage: 1 DF, UNK (1  IN 1 DAY)
  28. AVELOX [Concomitant]
     Active Substance: MOXIFLOXACIN HYDROCHLORIDE
     Dosage: UNK UNK, AS NECESSARY
     Dates: start: 20121214, end: 20121216
  29. VITAMIN B COMPLEX [Concomitant]
     Active Substance: CYANOCOBALAMIN\DEXPANTHENOL\NIACINAMIDE\PYRIDOXINE HYDROCHLORIDE\RIBOFLAVIN 5^-PHOSPHATE SODIUM\THIAMINE HYDROCHLORIDE\VITAMIN B COMPLEX
     Indication: HYPOVITAMINOSIS
     Dosage: 1 DF (TABLET), UNK
     Dates: start: 20130207
  30. ELOCOM [Concomitant]
     Active Substance: MOMETASONE FUROATE
     Dosage: UNK
     Dates: start: 20131126
  31. CALCIUMCARBONAAT [Concomitant]
     Dosage: 1 G, UNK
     Dates: start: 20121230
  32. MAGNETOP [Concomitant]
     Indication: MAGNESIUM DEFICIENCY
  33. PACLITAXEL. [Concomitant]
     Active Substance: PACLITAXEL
     Indication: HER-2 POSITIVE BREAST CANCER
     Dosage: 135 MG, Q3WK
     Route: 042
     Dates: start: 20121002
  34. AVELOX [Concomitant]
     Active Substance: MOXIFLOXACIN HYDROCHLORIDE
     Dosage: 400 MG, UNK
     Dates: start: 20130207, end: 20130207
  35. GELOFUSINE [Concomitant]
     Active Substance: GELATIN\SODIUM CHLORIDE
     Dosage: 1 UNIT, UNK
     Dates: start: 20130207, end: 20130207
  36. VOLULYTE [Concomitant]
     Dosage: 1 UNIT (VOLULYTE FREELEX), UNK
     Dates: start: 20130206, end: 20130206
  37. KALIUMCHLORIDE [Concomitant]
     Indication: HYPOKALAEMIA
     Dosage: UNK UNK, AS NECESSARY
     Dates: start: 20130206, end: 20130221
  38. ACETYLCYSTEINE. [Concomitant]
     Active Substance: ACETYLCYSTEINE
     Dosage: 200 MG, UNK
     Dates: start: 20140106

REACTIONS (2)
  - Osteonecrosis of jaw [Recovered/Resolved]
  - Tooth infection [Unknown]

NARRATIVE: CASE EVENT DATE: 20170120
